FAERS Safety Report 4997862-6 (Version None)
Quarter: 2006Q2

REPORT INFORMATION
  Report Type: 
  Country: None (occurrence: None)
  Receive Date: 20060510
  Receipt Date: 20060428
  Transmission Date: 20061013
  Serious: Yes (Hospitalization, Other)
  Sender: FDA-Public Use
  Company Number: GR-JNJFOC-20060500548

PATIENT
  Age: 21 Year
  Sex: Male
  Weight: 68 kg

DRUGS (6)
  1. REMICADE [Suspect]
     Dosage: 2ND INFUSION
     Route: 042
  2. REMICADE [Suspect]
     Indication: CROHN'S DISEASE
     Dosage: 1ST INFUSION
     Route: 042
  3. AZATHIOPRINE [Concomitant]
     Indication: CROHN'S DISEASE
     Route: 048
  4. MESALAZINE [Concomitant]
     Indication: CROHN'S DISEASE
     Route: 048
  5. CIPROFLOXACIN [Concomitant]
     Indication: CROHN'S DISEASE
     Route: 048
  6. HYDROCORTISONE [Concomitant]
     Indication: PROPHYLAXIS
     Route: 042

REACTIONS (4)
  - ASTHENIA [None]
  - FALL [None]
  - HYPOKALAEMIA [None]
  - INJURY [None]
